FAERS Safety Report 19902228 (Version 1)
Quarter: 2021Q3

REPORT INFORMATION
  Report Type: Spontaneous
  Country: US (occurrence: US)
  Receive Date: 20210930
  Receipt Date: 20210930
  Transmission Date: 20211014
  Serious: No
  Sender: FDA-Public Use
  Company Number: US-SA-2021SA318816

PATIENT
  Age: 52 Year
  Sex: Female

DRUGS (1)
  1. AUBAGIO [Suspect]
     Active Substance: TERIFLUNOMIDE
     Dosage: UNK
     Route: 048
     Dates: start: 202106

REACTIONS (5)
  - Joint swelling [Unknown]
  - Hot flush [Recovered/Resolved]
  - Product dose omission issue [Unknown]
  - Influenza like illness [Recovered/Resolved]
  - Headache [Unknown]
